FAERS Safety Report 9500248 (Version 1)
Quarter: 2013Q3

REPORT INFORMATION
  Report Type: Spontaneous
  Country: US (occurrence: None)
  Receive Date: 20130904
  Receipt Date: 20130904
  Transmission Date: 20140515
  Serious: Yes (Hospitalization)
  Sender: FDA-Public Use
  Company Number: None

PATIENT
  Age: 66 Year
  Sex: Female
  Weight: 85 kg

DRUGS (1)
  1. XARELTO [Suspect]
     Indication: ATRIAL FIBRILLATION
     Dosage: 1 TABLET, QHS/BEDTIME, ORAL
     Route: 048
     Dates: start: 20130820, end: 20130828

REACTIONS (3)
  - Abdominal pain upper [None]
  - Diarrhoea [None]
  - Haematemesis [None]
